FAERS Safety Report 5425749-3 (Version None)
Quarter: 2007Q3

REPORT INFORMATION
  Report Type: 
  Country: None (occurrence: None)
  Receive Date: 20070731
  Receipt Date: 20070412
  Transmission Date: 20080115
  Serious: No
  Sender: FDA-Public Use
  Company Number: 2007PV032049

PATIENT
  Age: 60 Year
  Sex: Male
  Weight: 98.9 kg

DRUGS (1)
  1. EXENATIDE(EXENATIDE) PEN,DISPOSABLE [Suspect]
     Indication: TYPE 2 DIABETES MELLITUS
     Dosage: 5 UG, 2/D, SUBCUTANEOUS, 5 UG 3/D, SUBCUTANEOUS
     Route: 058
     Dates: start: 20070301

REACTIONS (1)
  - WEIGHT DECREASED [None]
